FAERS Safety Report 15947877 (Version 1)
Quarter: 2019Q1

REPORT INFORMATION
  Report Type: Spontaneous
  Country: GB (occurrence: GB)
  Receive Date: 20190211
  Receipt Date: 20190211
  Transmission Date: 20190417
  Serious: Yes (Life-Threatening, Hospitalization, Other)
  Sender: FDA-Public Use
  Company Number: GB-BRISTOL-MYERS SQUIBB COMPANY-BMS-2019-010621

PATIENT
  Age: 64 Year
  Sex: Female

DRUGS (1)
  1. NIVOLUMAB BMS [Suspect]
     Active Substance: NIVOLUMAB
     Indication: MALIGNANT MELANOMA
     Dosage: UNK
     Route: 065

REACTIONS (4)
  - Hypothyroidism [Unknown]
  - Hyponatraemia [Unknown]
  - Lymphocytic hypophysitis [Not Recovered/Not Resolved]
  - Autoimmune thyroiditis [Unknown]

NARRATIVE: CASE EVENT DATE: 20190115
